FAERS Safety Report 14456526 (Version 4)
Quarter: 2019Q4

REPORT INFORMATION
  Report Type: Spontaneous
  Country: CA (occurrence: CA)
  Receive Date: 20180130
  Receipt Date: 20191227
  Transmission Date: 20200122
  Serious: Yes (Other)
  Sender: FDA-Public Use
  Company Number: CA-ORION CORPORATION ORION PHARMA-TREX2018-0226

PATIENT
  Age: 24 Year
  Sex: Female

DRUGS (25)
  1. DOXEPIN [Concomitant]
     Active Substance: DOXEPIN
     Route: 065
     Dates: start: 2015
  2. DICLECTIN [Concomitant]
     Active Substance: DOXYLAMINE SUCCINATE\PYRIDOXINE HYDROCHLORIDE
     Route: 065
  3. FOLIC ACID. [Concomitant]
     Active Substance: FOLIC ACID
     Route: 065
  4. PANTOLOC [Concomitant]
     Active Substance: PANTOPRAZOLE SODIUM
     Route: 065
     Dates: start: 2009
  5. APO-TRAZODONE [Concomitant]
     Active Substance: TRAZODONE HYDROCHLORIDE
     Route: 065
  6. METHOTREXATE (TRADE NAME UNKNOWN) [Suspect]
     Active Substance: METHOTREXATE
     Indication: PRODUCT USED FOR UNKNOWN INDICATION
     Dosage: STRENGTH: 2.5 MG TABLET, (10 TABLETS OF 2.5 MG)
     Route: 048
     Dates: start: 1999
  7. HYDROMORPHONE [Concomitant]
     Active Substance: HYDROMORPHONE
     Route: 065
  8. DICLECTIN [Concomitant]
     Active Substance: DOXYLAMINE SUCCINATE\PYRIDOXINE HYDROCHLORIDE
     Route: 065
     Dates: start: 1999
  9. DILAUDID [Concomitant]
     Active Substance: HYDROMORPHONE HYDROCHLORIDE
     Dosage: 4-5MG
     Route: 065
  10. DILAUDID [Concomitant]
     Active Substance: HYDROMORPHONE HYDROCHLORIDE
     Route: 065
  11. PROLIA [Concomitant]
     Active Substance: DENOSUMAB
     Dosage: 60 MG/ML
     Route: 065
  12. ATIVAN [Concomitant]
     Active Substance: LORAZEPAM
     Route: 065
  13. INFLECTRA [Concomitant]
     Active Substance: INFLIXIMAB-DYYB
     Route: 065
     Dates: start: 20191204
  14. ENBREL [Concomitant]
     Active Substance: ETANERCEPT
     Route: 065
     Dates: end: 201712
  15. SALAGEN [Concomitant]
     Active Substance: PILOCARPINE HYDROCHLORIDE
     Route: 065
  16. PREDNISONE. [Concomitant]
     Active Substance: PREDNISONE
     Dosage: 5-20MG
     Route: 065
     Dates: start: 1999
  17. PREDNISONE. [Concomitant]
     Active Substance: PREDNISONE
     Dosage: 1-20
     Route: 065
  18. VITAMIN D [Concomitant]
     Active Substance: VITAMIN D NOS
     Route: 065
  19. ONDANSETRON [Concomitant]
     Active Substance: ONDANSETRON
     Route: 065
     Dates: start: 2016
  20. INFLECTRA [Concomitant]
     Active Substance: INFLIXIMAB-DYYB
     Indication: RHEUMATOID ARTHRITIS
     Dosage: 0, 2, 6 WEEKS, THEN EVERY 8 WEEKS,
     Route: 065
     Dates: start: 20180201, end: 20180516
  21. INFLECTRA [Concomitant]
     Active Substance: INFLIXIMAB-DYYB
     Route: 065
     Dates: start: 20180711, end: 20180905
  22. INFLECTRA [Concomitant]
     Active Substance: INFLIXIMAB-DYYB
     Route: 065
     Dates: start: 20181029, end: 20191023
  23. IMOVANE [Concomitant]
     Active Substance: ZOPICLONE
     Route: 065
  24. HYDROMORPH CONTIN [Concomitant]
     Active Substance: HYDROMORPHONE
     Route: 065
  25. PROLIA [Concomitant]
     Active Substance: DENOSUMAB
     Dosage: 30 MG/ML
     Route: 065

REACTIONS (15)
  - Impaired gastric emptying [Unknown]
  - Peripheral swelling [Unknown]
  - Iritis [Unknown]
  - Nephrolithiasis [Unknown]
  - Headache [Unknown]
  - Arthritis [Unknown]
  - Pain [Not Recovered/Not Resolved]
  - Osteoporosis [Unknown]
  - Arthropathy [Unknown]
  - Haematuria [Unknown]
  - Drug ineffective [Unknown]
  - Impaired work ability [Not Recovered/Not Resolved]
  - Deep vein thrombosis [Unknown]
  - Kidney infection [Unknown]
  - Wound [Unknown]

NARRATIVE: CASE EVENT DATE: 2006
